FAERS Safety Report 14709840 (Version 1)
Quarter: 2018Q2

REPORT INFORMATION
  Report Type: Spontaneous
  Country: AU (occurrence: AU)
  Receive Date: 20180403
  Receipt Date: 20180403
  Transmission Date: 20180711
  Serious: Yes (Life-Threatening, Other)
  Sender: FDA-Public Use
  Company Number: AU-BAYER-2018-062943

PATIENT

DRUGS (3)
  1. ASPIRIN. [Suspect]
     Active Substance: ASPIRIN
     Dosage: UNK
  2. TICAGRELOR. [Suspect]
     Active Substance: TICAGRELOR
     Dosage: UNK
  3. RIVAROXABAN [Suspect]
     Active Substance: RIVAROXABAN
     Dosage: UNK

REACTIONS (2)
  - Vascular stent thrombosis [None]
  - Thrombocytopenia [None]

NARRATIVE: CASE EVENT DATE: 201703
